FAERS Safety Report 6267698-7 (Version None)
Quarter: 2009Q3

REPORT INFORMATION
  Report Type: 
  Country: None (occurrence: None)
  Receive Date: 20090714
  Receipt Date: 20090702
  Transmission Date: 20100115
  Serious: Yes (Other)
  Sender: FDA-Public Use
  Company Number: US-TYCO HEALTHCARE/MALLINCKRODT-T200801420

PATIENT
  Sex: Male
  Weight: 73.469 kg

DRUGS (10)
  1. OPTIMARK [Suspect]
     Indication: ANGIOGRAM
     Dosage: 8 ML, SINGLE
     Dates: start: 20050111, end: 20050111
  2. OPTIMARK [Suspect]
     Indication: FISTULOGRAM
     Dosage: 120 ML, SINGLE
     Dates: start: 20060419, end: 20060419
  3. OPTIRAY 350 [Concomitant]
     Indication: FISTULOGRAM
     Dosage: 30 ML, SINGLE
     Dates: start: 20050111, end: 20050111
  4. CELLCEPT [Concomitant]
     Indication: TRANSPLANT
     Dosage: 250 MG (4), BID
     Dates: start: 20070101
  5. PROGRAF [Concomitant]
     Indication: TRANSPLANT
     Dosage: 5 MG, BID
     Dates: start: 20070101
  6. COUMADIN [Concomitant]
     Indication: ANTICOAGULANT THERAPY
     Dosage: 5 MG, M,T,W,TH,S,S
  7. PREDNISONE TAB [Concomitant]
     Indication: TRANSPLANT
     Dosage: 5 MG, QD
     Dates: start: 19890101
  8. OMEPRAZOLE [Concomitant]
     Indication: ABDOMINAL DISCOMFORT
     Dosage: 20 MG, PRN
  9. VARIUS [Concomitant]
     Indication: HYPERTENSION
     Dates: start: 19890101
  10. METOPROLOL TARTRATE [Concomitant]
     Indication: BLOOD PRESSURE INCREASED
     Dosage: 50 MG, UNK

REACTIONS (3)
  - DRUG PRESCRIBING ERROR [None]
  - NEPHROGENIC SYSTEMIC FIBROSIS [None]
  - OFF LABEL USE [None]
